FAERS Safety Report 8837071 (Version 1)
Quarter: 2012Q4

REPORT INFORMATION
  Report Type: 
  Country: ES (occurrence: ES)
  Receive Date: 20121012
  Receipt Date: 20121012
  Transmission Date: 20130627
  Serious: Yes (Disabling)
  Sender: FDA-Public Use
  Company Number: ES-MYLANLABS-2012S1020554

PATIENT
  Age: 44 Year
  Sex: Female

DRUGS (2)
  1. DIAZEPAM TABLETS [Suspect]
     Indication: POISONING DELIBERATE
     Dosage: 4 or 5 tablets
     Route: 048
  2. LORAZEPAM [Concomitant]
     Indication: INSOMNIA
     Dosage: 0-0-1
     Route: 065

REACTIONS (4)
  - Amnesia [Unknown]
  - Diplopia [Unknown]
  - Gait disturbance [Unknown]
  - Poisoning deliberate [Unknown]
